FAERS Safety Report 4609409-4 (Version None)
Quarter: 2005Q2

REPORT INFORMATION
  Report Type: 
  Country: None (occurrence: None)
  Receive Date: 20050225
  Receipt Date: 20050110
  Transmission Date: 20051028
  Serious: No
  Sender: FDA-Public Use
  Company Number: 2005US002344

PATIENT
  Age: 48 Year
  Sex: Female
  Weight: 69.4 kg

DRUGS (3)
  1. ALOXI [Suspect]
     Indication: PROPHYLAXIS OF NAUSEA AND VOMITING
     Dosage: 0.25 MG, SINGLE, INTRAVENOUS
     Route: 042
     Dates: start: 20050107, end: 20050107
  2. DECADRON [Suspect]
     Indication: PROPHYLAXIS OF NAUSEA AND VOMITING
     Dosage: INTRAVENOUS
     Route: 042
     Dates: start: 20050107, end: 20050107
  3. SODIUM CHLORIDE [Suspect]
     Dosage: 100 ML, INTRAVENOUS
     Route: 042
     Dates: start: 20050107, end: 20050107

REACTIONS (3)
  - EXTRAVASATION [None]
  - GRAVITATIONAL OEDEMA [None]
  - PAIN IN EXTREMITY [None]
